FAERS Safety Report 10149346 (Version 1)
Quarter: 2014Q2

REPORT INFORMATION
  Report Type: Spontaneous
  Country: US (occurrence: None)
  Receive Date: 20140430
  Receipt Date: 20140430
  Transmission Date: 20141212
  Serious: Yes (Hospitalization)
  Sender: FDA-Public Use
  Company Number: None

PATIENT
  Age: 40 Year
  Sex: Male

DRUGS (5)
  1. HALOPERIDOL [Suspect]
     Indication: DELIRIUM
     Route: 042
     Dates: end: 20121117
  2. HALOPERIDOL [Concomitant]
  3. ADENOSINE [Concomitant]
  4. DIGOXIN [Concomitant]
  5. OLANZAPINE [Concomitant]

REACTIONS (5)
  - Loss of consciousness [None]
  - Sudden cardiac death [None]
  - Delirium [None]
  - Withdrawal syndrome [None]
  - Agitation [None]
